FAERS Safety Report 8459272-9 (Version None)
Quarter: 2012Q2

REPORT INFORMATION
  Report Type: 
  Country: None (occurrence: None)
  Receive Date: 20120622
  Receipt Date: 20120619
  Transmission Date: 20120825
  Serious: Yes (Other)
  Sender: FDA-Public Use
  Company Number: CA-ROCHE-1080796

PATIENT
  Sex: Female

DRUGS (7)
  1. TIOTROPIUM BROMIDE [Concomitant]
  2. PULMICORT [Concomitant]
  3. FLUTICASONE PROPIONATE [Concomitant]
  4. SALMETEROL XINAFOATE [Concomitant]
  5. XOLAIR [Suspect]
     Indication: ASTHMA
     Route: 058
     Dates: start: 20120618
  6. PREDNISONE TAB [Concomitant]
  7. VENTOLIN [Concomitant]

REACTIONS (2)
  - DYSPHONIA [None]
  - APHONIA [None]
